FAERS Safety Report 9134557 (Version 1)
Quarter: 2013Q1

REPORT INFORMATION
  Report Type: Spontaneous
  Country: US (occurrence: US)
  Receive Date: 20130304
  Receipt Date: 20130304
  Transmission Date: 20140127
  Serious: Yes (Other)
  Sender: FDA-Public Use
  Company Number: PHEH2013US004817

PATIENT
  Age: 75 Year
  Sex: Female

DRUGS (5)
  1. GLEEVEC [Suspect]
     Dosage: 1 DF (400MG), DAILY
     Route: 048
  2. OFLOXACIN [Concomitant]
  3. METOPROL ZOK MEPHA [Concomitant]
  4. AMLODIPINE [Concomitant]
  5. PRAVASTATIN [Concomitant]

REACTIONS (2)
  - Ocular hyperaemia [Recovering/Resolving]
  - Eye haemorrhage [Recovering/Resolving]
